FAERS Safety Report 5680532-9 (Version None)
Quarter: 2008Q1

REPORT INFORMATION
  Report Type: 
  Country: None (occurrence: None)
  Receive Date: 20080326
  Receipt Date: 20080318
  Transmission Date: 20080703
  Serious: Yes (Hospitalization)
  Sender: FDA-Public Use
  Company Number: JP-MERCK-0801USA05158

PATIENT
  Age: 67 Year
  Sex: Male
  Weight: 59 kg

DRUGS (7)
  1. HYZAAR [Suspect]
     Indication: HYPERTENSION
     Route: 048
     Dates: start: 20080122, end: 20080122
  2. CARVEDILOL [Concomitant]
     Indication: HYPERTENSION
     Route: 048
     Dates: start: 20070201
  3. CARVEDILOL [Concomitant]
     Indication: ANGINA PECTORIS
     Route: 048
     Dates: start: 20070201
  4. DILTIAZEM HYDROCHLORIDE [Concomitant]
     Indication: HYPERTENSION
     Route: 048
     Dates: start: 20070801
  5. DILTIAZEM HYDROCHLORIDE [Concomitant]
     Indication: ANGINA PECTORIS
     Route: 048
     Dates: start: 20070801
  6. ISOSORBIDE DINITRATE [Concomitant]
     Indication: ANGINA PECTORIS
     Route: 061
     Dates: start: 20040901
  7. NICORANDIL [Concomitant]
     Indication: ANGINA PECTORIS
     Route: 048
     Dates: start: 20070801

REACTIONS (2)
  - DEPRESSED LEVEL OF CONSCIOUSNESS [None]
  - HYPOTENSION [None]
